FAERS Safety Report 6571364-8 (Version None)
Quarter: 2010Q1

REPORT INFORMATION
  Report Type: 
  Country: None (occurrence: None)
  Receive Date: 20100205
  Receipt Date: 20100126
  Transmission Date: 20100710
  Serious: Yes (Hospitalization)
  Sender: FDA-Public Use
  Company Number: US-BIOGENIDEC-2009BI037467

PATIENT
  Age: 59 Year
  Sex: Female

DRUGS (3)
  1. AVONEX [Suspect]
     Indication: MULTIPLE SCLEROSIS
     Route: 030
     Dates: start: 20070801, end: 20091001
  2. AVONEX [Suspect]
     Route: 030
     Dates: start: 20091101
  3. AVONEX [Suspect]
     Route: 030
     Dates: start: 19991101, end: 20070601

REACTIONS (2)
  - MUSCULAR WEAKNESS [None]
  - OSTEOARTHRITIS [None]
